FAERS Safety Report 16916591 (Version 1)
Quarter: 2019Q4

REPORT INFORMATION
  Report Type: Spontaneous
  Country: US (occurrence: US)
  Receive Date: 20191014
  Receipt Date: 20191014
  Transmission Date: 20200122
  Serious: Yes (Hospitalization)
  Sender: FDA-Public Use
  Company Number: US-BEH-2019107852

PATIENT
  Age: 37 Year
  Sex: Female

DRUGS (2)
  1. HIZENTRA [Suspect]
     Active Substance: HUMAN IMMUNOGLOBULIN G
     Dosage: 4 GRAM, QW
     Route: 058
  2. HIZENTRA [Suspect]
     Active Substance: HUMAN IMMUNOGLOBULIN G
     Indication: HYPOGAMMAGLOBULINAEMIA
     Dosage: 4 GRAM, QW
     Route: 058
     Dates: start: 20190422

REACTIONS (1)
  - Intestinal obstruction [Unknown]

NARRATIVE: CASE EVENT DATE: 20191001
